FAERS Safety Report 6577742-5 (Version None)
Quarter: 2010Q1

REPORT INFORMATION
  Report Type: 
  Country: None (occurrence: None)
  Receive Date: 20100211
  Receipt Date: 20100129
  Transmission Date: 20100710
  Serious: Yes (Other)
  Sender: FDA-Public Use
  Company Number: US-ELI_LILLY_AND_COMPANY-US201002001478

PATIENT
  Sex: Male

DRUGS (13)
  1. FORTEO [Suspect]
     Indication: OSTEOPOROSIS
     Dosage: 20 UG, DAILY (1/D)
     Dates: start: 20080701, end: 20100101
  2. HYDROCHLOROTHIAZIDE [Concomitant]
     Dosage: 12.5 MG, DAILY (1/D)
  3. PRAVASTATIN [Concomitant]
     Dosage: 20 MG, DAILY (1/D)
  4. COQ10 [Concomitant]
     Dosage: 100 MG, DAILY (1/D)
  5. VITAMIN C [Concomitant]
     Dosage: 1000 MG, QOD
  6. VITAMIN D [Concomitant]
     Dosage: 1000 U, DAILY (1/D)
  7. VITAMIN B-12 [Concomitant]
     Dosage: 500 MG, DAILY (1/D)
  8. CENTRUM                            /00554501/ [Concomitant]
     Dosage: UNK, DAILY (1/D)
  9. CALTRATE + D [Concomitant]
     Dosage: 600 MG, DAILY (1/D)
  10. CALCIUM [Concomitant]
     Dosage: 1200 MG, DAILY (1/D)
  11. FISH OIL [Concomitant]
     Dosage: UNK, DAILY (1/D)
  12. HYALURONIC ACID [Concomitant]
     Dosage: UNK, DAILY (1/D)
  13. GLUCOSAMINE [Concomitant]
     Dosage: UNK, DAILY (1/D)

REACTIONS (1)
  - PROSTATE CANCER [None]
